FAERS Safety Report 11789817 (Version 1)
Quarter: 2015Q4

REPORT INFORMATION
  Report Type: Report from Study
  Country: US (occurrence: US)
  Receive Date: 20151201
  Receipt Date: 20151201
  Transmission Date: 20160305
  Serious: Yes (Hospitalization, Other)
  Sender: FDA-Public Use
  Company Number: PHHY2015US152235

PATIENT
  Age: 61 Year

DRUGS (2)
  1. EVEROLIMUS [Suspect]
     Active Substance: EVEROLIMUS
     Indication: NEUROENDOCRINE TUMOUR
     Dosage: 10 MG, QD (28 DAYS CYCLE)
     Route: 048
     Dates: start: 20121003
  2. BEVACIZUMAB [Suspect]
     Active Substance: BEVACIZUMAB
     Indication: NEUROENDOCRINE TUMOUR
     Dosage: 10 MG/KG,(OVER 30-90 MINUTES ON DAYS 1 AND 15, 28 DAYS CYCLE)
     Route: 042
     Dates: start: 20121003

REACTIONS (6)
  - Cardiac murmur [Unknown]
  - Left ventricular dysfunction [Unknown]
  - Jugular vein distension [Unknown]
  - Hypertension [Unknown]
  - Pleural effusion [Unknown]
  - Oedema peripheral [Unknown]

NARRATIVE: CASE EVENT DATE: 20121116
